APPROVED DRUG PRODUCT: CEFOTAXIME SODIUM
Active Ingredient: CEFOTAXIME SODIUM
Strength: EQ 10GM BASE/VIAL
Dosage Form/Route: INJECTABLE;INJECTION
Application: A065348 | Product #001
Applicant: CEPHAZONE PHARMA LLC
Approved: Jan 25, 2010 | RLD: No | RS: No | Type: DISCN